FAERS Safety Report 6029121-7 (Version None)
Quarter: 2009Q1

REPORT INFORMATION
  Report Type: 
  Country: None (occurrence: None)
  Receive Date: 20090106
  Receipt Date: 20081225
  Transmission Date: 20090719
  Serious: Yes (Death, Life-Threatening, Other)
  Sender: FDA-Public Use
  Company Number: JP-PFIZER INC-2008066466

PATIENT

DRUGS (39)
  1. SILDENAFIL CITRATE [Suspect]
     Indication: PULMONARY HYPERTENSION
     Dosage: 20 MG, 3X/DAY
     Route: 048
     Dates: start: 20080702
  2. TRACLEER [Concomitant]
     Dosage: UNK
     Route: 048
     Dates: start: 20080326, end: 20080804
  3. BERAPROST SODIUM [Concomitant]
     Dosage: UNK
     Route: 048
     Dates: start: 20080409
  4. TAKEPRON [Concomitant]
     Route: 048
  5. MUCOSTA [Concomitant]
     Dosage: UNK
     Route: 048
     Dates: end: 20080804
  6. MUCOSOLVAN [Concomitant]
     Dosage: UNK
     Route: 048
     Dates: end: 20080804
  7. JUVELA NICOTINATE [Concomitant]
     Dosage: UNK
     Route: 048
     Dates: end: 20080804
  8. GASMOTIN [Concomitant]
     Route: 048
  9. ALUMINUM HYDROXIDE/MAGNESIUM HYDROXIDE/CHLORHEXIDINE ACETATE [Concomitant]
     Dosage: UNK
     Route: 048
     Dates: end: 20080804
  10. PREDONINE [Concomitant]
     Route: 042
  11. PREDNISOLONE [Concomitant]
     Dosage: UNK
     Route: 048
     Dates: end: 20080804
  12. LASIX [Concomitant]
     Dosage: UNK
     Route: 048
     Dates: end: 20080804
  13. FUNGIZONE [Concomitant]
     Dosage: UNK
     Route: 048
     Dates: start: 20080728, end: 20080804
  14. COTRIM [Concomitant]
     Dosage: UNK
     Route: 048
     Dates: start: 20080731, end: 20080806
  15. NOVOLIN R [Concomitant]
     Dosage: UNK
     Route: 058
     Dates: start: 20080731, end: 20080921
  16. HIRUDOID [Concomitant]
     Dosage: UNK
     Route: 062
     Dates: start: 20080702
  17. MYSER [Concomitant]
     Dosage: UNK
     Route: 062
     Dates: start: 20080702
  18. SODIUM CHLORIDE [Concomitant]
     Dosage: UNK
     Route: 042
     Dates: start: 20080731, end: 20080819
  19. SOLU-MEDROL [Concomitant]
     Dosage: UNK
     Route: 042
     Dates: start: 20080731, end: 20080802
  20. BROTIZOLAM [Concomitant]
     Route: 048
  21. VEEN D [Concomitant]
     Route: 042
  22. NEW LECICARBON [Concomitant]
     Route: 054
  23. PANTOSIN [Concomitant]
     Route: 048
  24. MAXIPIME [Concomitant]
     Route: 042
  25. ALL OTHER THERAPEUTIC PRODUCTS [Concomitant]
     Route: 042
  26. SOLDEM 1 [Concomitant]
     Route: 042
  27. VITAMEDIN INTRAVENOUS [Concomitant]
     Route: 042
  28. GASTER [Concomitant]
     Route: 042
  29. FULCALIQ [Concomitant]
  30. MEROPEN [Concomitant]
     Route: 042
  31. CIPROXAN [Concomitant]
     Route: 042
  32. ELASPOL [Concomitant]
     Route: 042
  33. MIDAZOLAM HCL [Concomitant]
     Route: 042
  34. GLUCOSE [Concomitant]
     Route: 042
  35. MVI NEO 9 [Concomitant]
     Route: 042
  36. MULTI-VITAMINS [Concomitant]
     Route: 042
  37. SODIUM CHLORIDE [Concomitant]
     Route: 042
  38. ELEMENMIC [Concomitant]
     Route: 042
  39. INTRALIPID 10% [Concomitant]
     Route: 042

REACTIONS (2)
  - DEATH [None]
  - INTERSTITIAL LUNG DISEASE [None]
